FAERS Safety Report 7973801-0 (Version None)
Quarter: 2011Q4

REPORT INFORMATION
  Report Type: 
  Country: None (occurrence: None)
  Receive Date: 20111213
  Receipt Date: 20111208
  Transmission Date: 20120403
  Serious: Yes (Other)
  Sender: FDA-Public Use
  Company Number: US-ROCHE-1013319

PATIENT
  Sex: Male

DRUGS (2)
  1. PEGINTERFERON ALFA-2A [Suspect]
     Indication: HEPATITIS C
     Dates: start: 20111104
  2. COPEGUS [Suspect]
     Indication: HEPATITIS C
     Dates: start: 20111104

REACTIONS (4)
  - CHEST PAIN [None]
  - DYSPNOEA [None]
  - INFLUENZA LIKE ILLNESS [None]
  - STENT MALFUNCTION [None]
